FAERS Safety Report 23840955 (Version 5)
Quarter: 2024Q3

REPORT INFORMATION
  Report Type: Report from Study
  Country: CO (occurrence: CO)
  Receive Date: 20240510
  Receipt Date: 20240809
  Transmission Date: 20241017
  Serious: Yes (Other)
  Sender: NOVARTIS
  Company Number: CO-002147023-NVSC2024CO098784

PATIENT
  Sex: Male
  Weight: 83 kg

DRUGS (1)
  1. COSENTYX [Suspect]
     Active Substance: SECUKINUMAB
     Indication: Psoriasis
     Dosage: 300 MG, QMO (2 OF 150 ML EACH, EVERY 30 DAYS)
     Route: 058
     Dates: start: 20161124, end: 20240607

REACTIONS (3)
  - Hepatitis B [Recovered/Resolved]
  - Hip fracture [Unknown]
  - Dysstasia [Unknown]
